FAERS Safety Report 23176661 (Version 1)
Quarter: 2023Q4

REPORT INFORMATION
  Report Type: Spontaneous
  Country: US (occurrence: None)
  Receive Date: 20231110
  Receipt Date: 20231110
  Transmission Date: 20240109
  Serious: No
  Sender: FDA-Public Use
  Company Number: None

PATIENT
  Age: 55 Year
  Sex: Female
  Weight: 79.65 kg

DRUGS (2)
  1. HYDROXOCOBALAMIN\TIRZEPATIDE [Suspect]
     Active Substance: HYDROXOCOBALAMIN\TIRZEPATIDE
     Indication: Type 2 diabetes mellitus
     Route: 058
     Dates: start: 20231010, end: 20231025
  2. AMBIEN [Suspect]
     Active Substance: ZOLPIDEM TARTRATE

REACTIONS (2)
  - Insomnia [None]
  - Nonspecific reaction [None]

NARRATIVE: CASE EVENT DATE: 20231018
